FAERS Safety Report 5523090-1 (Version None)
Quarter: 2007Q4

REPORT INFORMATION
  Report Type: 
  Country: None (occurrence: None)
  Receive Date: 20071119
  Receipt Date: 20071106
  Transmission Date: 20080405
  Serious: Yes (Life-Threatening, Hospitalization)
  Sender: FDA-Public Use
  Company Number: POMP-11077

PATIENT
  Age: 10 Month
  Sex: Male
  Weight: 6.975 kg

DRUGS (6)
  1. MYOZYME [Suspect]
     Indication: GLYCOGEN STORAGE DISEASE TYPE II
     Dosage: 30 MG/KG Q2WKS IV
     Route: 042
     Dates: start: 20070425
  2. MYOZYME [Suspect]
  3. MYOZYME [Suspect]
     Indication: GLYCOGEN STORAGE DISEASE TYPE II
     Dosage: 20 MG/KG Q2WKS IV
     Route: 042
     Dates: start: 20060911, end: 20070411
  4. METHOTREXATE [Concomitant]
  5. RITUXIMAB [Concomitant]
  6. IMMUNE GLOBULIN INTRAVENOUS (HUMAN) [Concomitant]

REACTIONS (27)
  - ACTIVATED PARTIAL THROMBOPLASTIN TIME PROLONGED [None]
  - BACTERAEMIA [None]
  - BACTERIAL SEPSIS [None]
  - BLOOD CALCIUM ABNORMAL [None]
  - BRONCHIAL HYPERREACTIVITY [None]
  - CATHETER RELATED INFECTION [None]
  - CENTRAL LINE INFECTION [None]
  - COAGULOPATHY [None]
  - DIAPHRAGM MUSCLE WEAKNESS [None]
  - DISEASE PROGRESSION [None]
  - DYSPNOEA [None]
  - ENTEROBACTER INFECTION [None]
  - EYELID FUNCTION DISORDER [None]
  - HEART RATE INCREASED [None]
  - HYPERCAPNIA [None]
  - HYPOTENSION [None]
  - IRON DEFICIENCY ANAEMIA [None]
  - METABOLIC ACIDOSIS [None]
  - MUSCLE CONTRACTIONS INVOLUNTARY [None]
  - MUSCULAR WEAKNESS [None]
  - NYSTAGMUS [None]
  - PARAINFLUENZAE VIRUS INFECTION [None]
  - PNEUMONIA [None]
  - POST PROCEDURAL INFECTION [None]
  - PROTHROMBIN TIME PROLONGED [None]
  - PYREXIA [None]
  - RESPIRATORY RATE INCREASED [None]
